FAERS Safety Report 4698711-6 (Version None)
Quarter: 2005Q2

REPORT INFORMATION
  Report Type: 
  Country: None (occurrence: None)
  Receive Date: 20050622
  Receipt Date: 20050610
  Transmission Date: 20051028
  Serious: Yes (Hospitalization)
  Sender: FDA-Public Use
  Company Number: HQWYE355425MAR05

PATIENT
  Age: 64 Year
  Sex: Female
  Weight: 42.2 kg

DRUGS (2)
  1. MYLOTARG [Suspect]
     Indication: ACUTE MYELOID LEUKAEMIA
     Dosage: 5.5 MG, INTRAVENOUS
     Route: 042
     Dates: start: 20020520, end: 20020520
  2. MYLOTARG [Suspect]
     Indication: ACUTE MYELOID LEUKAEMIA
     Dosage: 5.5 MG, INTRAVENOUS
     Route: 042
     Dates: start: 20020527, end: 20020527

REACTIONS (5)
  - ATRIAL FIBRILLATION [None]
  - CHILLS [None]
  - PLEURAL EFFUSION [None]
  - PYREXIA [None]
  - TACHYCARDIA [None]
